FAERS Safety Report 5735522-4 (Version None)
Quarter: 2008Q2

REPORT INFORMATION
  Report Type: 
  Country: None (occurrence: None)
  Receive Date: 20080512
  Receipt Date: 20080506
  Transmission Date: 20081010
  Serious: Yes (Hospitalization)
  Sender: FDA-Public Use
  Company Number: FR-GENENTECH-257895

PATIENT
  Sex: Female

DRUGS (1)
  1. RAPTIVA [Suspect]
     Indication: PSORIASIS
     Dosage: 1 MG/KG, UNK
     Route: 058
     Dates: start: 20071201

REACTIONS (3)
  - DIPLOPIA [None]
  - MYASTHENIA GRAVIS [None]
  - THORACIC OUTLET SYNDROME [None]
